FAERS Safety Report 7607672-9 (Version None)
Quarter: 2011Q3

REPORT INFORMATION
  Report Type: 
  Country: None (occurrence: None)
  Receive Date: 20110713
  Receipt Date: 20110426
  Transmission Date: 20111222
  Serious: No
  Sender: FDA-Public Use
  Company Number: PHHY2011US41823

PATIENT

DRUGS (1)
  1. RECLAST [Suspect]
     Dates: start: 20100525

REACTIONS (2)
  - OSTEOMYELITIS [None]
  - PAIN IN JAW [None]
